FAERS Safety Report 8353498-0 (Version None)
Quarter: 2012Q2

REPORT INFORMATION
  Report Type: 
  Country: None (occurrence: None)
  Receive Date: 20120511
  Receipt Date: 20110425
  Transmission Date: 20120825
  Serious: No
  Sender: FDA-Public Use
  Company Number: US-GLAXOSMITHKLINE-A0924413A

PATIENT
  Age: 52 Year
  Sex: Female

DRUGS (15)
  1. LORTAB [Concomitant]
  2. LASIX [Concomitant]
  3. ZYRTEC [Concomitant]
  4. CITALOPRAM HYDROBROMIDE [Concomitant]
  5. PHENERGAN [Concomitant]
  6. COMBIVENT [Concomitant]
  7. VITAMIN D + CALCIUM [Concomitant]
  8. HYDROCHLOROTHIAZIDE [Concomitant]
  9. BENZONATATE [Concomitant]
  10. XELODA [Suspect]
     Indication: BREAST CANCER
     Dosage: 1150MG TWICE PER DAY
     Route: 065
     Dates: start: 20110329
  11. ASMANEX TWISTHALER [Concomitant]
     Route: 055
  12. POTASSIUM CHLORIDE [Concomitant]
  13. PRILOSEC [Concomitant]
  14. UNKNOWN MEDICATION [Concomitant]
  15. TYKERB [Suspect]
     Indication: BREAST CANCER
     Dosage: 5TAB PER DAY
     Route: 048
     Dates: start: 20110329

REACTIONS (6)
  - PARAESTHESIA [None]
  - GASTROINTESTINAL MOTILITY DISORDER [None]
  - DIARRHOEA [None]
  - CHEST DISCOMFORT [None]
  - CONSTIPATION [None]
  - NAUSEA [None]
